FAERS Safety Report 18447922 (Version 1)
Quarter: 2020Q4

REPORT INFORMATION
  Report Type: Spontaneous
  Country: US (occurrence: US)
  Receive Date: 20201030
  Receipt Date: 20201030
  Transmission Date: 20210114
  Serious: No
  Sender: FDA-Public Use
  Company Number: US-UPSHER-SMITH LABORATORIES, LLC-2019USL00835

PATIENT
  Sex: Male

DRUGS (2)
  1. JANTOVEN [Suspect]
     Active Substance: WARFARIN SODIUM
     Dosage: UNK, EVERY 48 HOURS (ALTERNATING WITH 5 MG TABLETS EVERY 48 HOURS)
  2. JANTOVEN [Suspect]
     Active Substance: WARFARIN SODIUM
     Dosage: UNK, EVERY 48 HOURS (ALTERNATING WITH 4 MG TABLETS EVERY 48 HOURS)

REACTIONS (1)
  - International normalised ratio decreased [Unknown]
